FAERS Safety Report 6454020-6 (Version None)
Quarter: 2009Q4

REPORT INFORMATION
  Report Type: 
  Country: None (occurrence: None)
  Receive Date: 20091124
  Receipt Date: 20091117
  Transmission Date: 20100525
  Serious: Yes (Other)
  Sender: FDA-Public Use
  Company Number: A0811897A

PATIENT
  Sex: Male
  Weight: 77.5 kg

DRUGS (7)
  1. VENTOLIN [Suspect]
     Indication: ASTHMA
     Dates: start: 20080101
  2. ALBUTEROL [Suspect]
     Indication: ASTHMA
  3. AZMACORT [Concomitant]
  4. SINGULAIR [Concomitant]
     Dates: end: 20091021
  5. LORATADINE [Concomitant]
  6. PRAVASTATIN [Concomitant]
     Indication: BLOOD CHOLESTEROL INCREASED
  7. INDOMETHACIN [Concomitant]

REACTIONS (6)
  - ASTHMA [None]
  - DRUG HYPERSENSITIVITY [None]
  - DRUG INEFFECTIVE [None]
  - HYPERSENSITIVITY [None]
  - ILL-DEFINED DISORDER [None]
  - INHIBITORY DRUG INTERACTION [None]
